FAERS Safety Report 4811545-4 (Version None)
Quarter: 2005Q4

REPORT INFORMATION
  Report Type: 
  Country: None (occurrence: None)
  Receive Date: 20051025
  Receipt Date: 20051007
  Transmission Date: 20060501
  Serious: Yes (Other)
  Sender: FDA-Public Use
  Company Number: ACO_0187_2005

PATIENT
  Age: 49 Year
  Sex: Male

DRUGS (1)
  1. SIRDALUD [Suspect]
     Dosage: DF PO     A FEW WEEKS
     Route: 048
     Dates: start: 20050101

REACTIONS (1)
  - OESOPHAGEAL ULCER [None]
